FAERS Safety Report 4720597-1 (Version None)
Quarter: 2005Q3

REPORT INFORMATION
  Report Type: 
  Country: None (occurrence: None)
  Receive Date: 20050721
  Receipt Date: 20050719
  Transmission Date: 20060218
  Serious: Yes (Death)
  Sender: FDA-Public Use
  Company Number: GB-BRISTOL-MYERS SQUIBB COMPANY-13043823

PATIENT
  Sex: Male

DRUGS (11)
  1. ACETAMINOPHEN [Suspect]
  2. WARFARIN SODIUM [Suspect]
  3. ALLOPURINOL [Suspect]
     Route: 048
  4. COVERSYL [Suspect]
     Route: 048
  5. SPIRIVA [Suspect]
     Route: 055
  6. DIGOXIN [Suspect]
     Route: 048
  7. FRUSEMIDE [Suspect]
     Route: 048
  8. PANTOPRAZOLE [Suspect]
     Route: 048
  9. SIMVASTATIN [Suspect]
     Route: 048
  10. BECLOMETHASONE DIPROPIONATE [Suspect]
  11. VENTOLIN [Suspect]
     Route: 055

REACTIONS (1)
  - AORTIC DISSECTION [None]
